FAERS Safety Report 7025158-X (Version None)
Quarter: 2010Q3

REPORT INFORMATION
  Report Type: 
  Country: None (occurrence: None)
  Receive Date: 20100916
  Receipt Date: 20100720
  Transmission Date: 20110219
  Serious: Yes (Other)
  Sender: FDA-Public Use
  Company Number: DKLU1063770

PATIENT
  Age: 32 Year
  Sex: Female

DRUGS (10)
  1. SABRIL [Suspect]
     Indication: EPILEPSY
     Dosage: 50 MG MILLIGRAM(S), AM + AT 1400, ORAL; 500 MG MILLIGRAM(S), AM, ORAL; 750 MG MILLIGRAM(S), AT 1400,
     Route: 048
     Dates: start: 20091109, end: 20100201
  2. SABRIL [Suspect]
     Indication: EPILEPSY
     Dosage: 50 MG MILLIGRAM(S), AM + AT 1400, ORAL; 500 MG MILLIGRAM(S), AM, ORAL; 750 MG MILLIGRAM(S), AT 1400,
     Route: 048
     Dates: start: 20100201
  3. SABRIL [Suspect]
     Indication: EPILEPSY
     Dosage: 50 MG MILLIGRAM(S), AM + AT 1400, ORAL; 500 MG MILLIGRAM(S), AM, ORAL; 750 MG MILLIGRAM(S), AT 1400,
     Route: 048
     Dates: start: 20100201
  4. MIDODRINE HYDROCHLORIDE [Concomitant]
  5. AMBIEN [Concomitant]
  6. HALDOL [Concomitant]
  7. VALTREX [Concomitant]
  8. KEPPRA [Concomitant]
  9. TRANXENE [Concomitant]
  10. TORADOL [Concomitant]

REACTIONS (2)
  - PHOTOPHOBIA [None]
  - VISUAL IMPAIRMENT [None]
